FAERS Safety Report 5219107-4 (Version None)
Quarter: 2007Q1

REPORT INFORMATION
  Report Type: 
  Country: None (occurrence: None)
  Receive Date: 20070123
  Receipt Date: 20070110
  Transmission Date: 20070707
  Serious: Yes (Death)
  Sender: FDA-Public Use
  Company Number: 2006EN000189

PATIENT
  Age: 13 Year
  Sex: Female
  Weight: 44 kg

DRUGS (2)
  1. ADAGEN [Suspect]
     Dosage: 625 IU;BIW;IM
     Route: 030
     Dates: start: 20030522, end: 20061101
  2. ADAGEN [Suspect]
     Dosage: 625 IU;BIW;IM
     Route: 030
     Dates: start: 19940101

REACTIONS (1)
  - HEPATIC NEOPLASM MALIGNANT [None]
